FAERS Safety Report 8299044-1 (Version None)
Quarter: 2012Q2

REPORT INFORMATION
  Report Type: 
  Country: None (occurrence: None)
  Receive Date: 20120419
  Receipt Date: 20120410
  Transmission Date: 20120825
  Serious: Yes (Hospitalization, Other)
  Sender: FDA-Public Use
  Company Number: US-MUTUAL PHARMACEUTICAL COMPANY, INC.-CLCY20120060

PATIENT
  Age: 96 Year
  Sex: Male

DRUGS (8)
  1. ASPIRIN [Concomitant]
     Indication: PRODUCT USED FOR UNKNOWN INDICATION
     Route: 065
  2. COLCRYS [Suspect]
     Route: 065
     Dates: start: 20120301, end: 20120301
  3. LIPITOR [Suspect]
     Indication: HYPERLIPIDAEMIA
     Route: 065
     Dates: end: 20120315
  4. ONGLYZA [Concomitant]
     Indication: DIABETES MELLITUS
     Route: 065
     Dates: end: 20120315
  5. LOSARTAN/HYDROCHLOROTHIAZIDE 40/12.5 [Concomitant]
     Indication: HYPERTENSION
     Route: 065
     Dates: end: 20120315
  6. FRESH TEARS [Concomitant]
     Indication: PRODUCT USED FOR UNKNOWN INDICATION
     Route: 047
  7. LATANOPROST [Concomitant]
     Indication: PRODUCT USED FOR UNKNOWN INDICATION
     Route: 047
  8. COLCRYS [Suspect]
     Indication: GOUT
     Route: 065
     Dates: start: 20120301, end: 20120301

REACTIONS (7)
  - RENAL FAILURE ACUTE [None]
  - CONDUCTION DISORDER [None]
  - DEHYDRATION [None]
  - RHABDOMYOLYSIS [None]
  - HAEMOGLOBIN DECREASED [None]
  - HAEMATOCRIT DECREASED [None]
  - DIARRHOEA [None]
